FAERS Safety Report 4715041-4 (Version None)
Quarter: 2005Q3

REPORT INFORMATION
  Report Type: 
  Country: None (occurrence: None)
  Receive Date: 20050715
  Receipt Date: 20050707
  Transmission Date: 20060218
  Serious: Yes (Hospitalization)
  Sender: FDA-Public Use
  Company Number: US-JNJFOC-20050701543

PATIENT
  Sex: Female

DRUGS (7)
  1. ULTRAM [Suspect]
     Route: 048
     Dates: start: 20050601, end: 20050601
  2. ADVAIR DISKUS 100/50 [Concomitant]
  3. ADVAIR DISKUS 100/50 [Concomitant]
  4. SINGULAIR [Concomitant]
  5. CLARITIN [Concomitant]
  6. ALBUTEROL [Concomitant]
     Route: 055
  7. HYDROCHLOROTHIAZIDE [Concomitant]

REACTIONS (4)
  - COORDINATION ABNORMAL [None]
  - DIZZINESS [None]
  - HYPOTENSION [None]
  - MYOCLONUS [None]
